FAERS Safety Report 12255016 (Version 1)
Quarter: 2016Q2

REPORT INFORMATION
  Report Type: Not Available
  Country: US (occurrence: US)
  Receive Date: 20160411
  Receipt Date: 20160411
  Transmission Date: 20160815
  Serious: Yes (Other)
  Sender: FDA-Public Use
  Company Number: US-ANIPHARMA-2016-US-002168

PATIENT
  Age: 8 Year
  Sex: Female

DRUGS (1)
  1. ZONISAMIDE (NON-SPECIFIC) [Suspect]
     Active Substance: ZONISAMIDE

REACTIONS (1)
  - Drug reaction with eosinophilia and systemic symptoms [Unknown]
